FAERS Safety Report 8710761 (Version 2)
Quarter: 2012Q4

REPORT INFORMATION
  Report Type: Report from Study
  Country: DE (occurrence: DE)
  Receive Date: 20120831
  Receipt Date: 20121224
  Transmission Date: 20130627
  Serious: Yes (Hospitalization)
  Sender: FDA-Public Use
  Company Number: DE-MERCK-1208DEU000601

PATIENT

DRUGS (4)
  1. SYCREST [Suspect]
     Indication: BIPOLAR I DISORDER
     Dosage: 5 mg, qd
     Route: 060
     Dates: start: 20120123, end: 20120126
  2. SYCREST [Suspect]
     Indication: PSYCHOTIC DISORDER
  3. TRUXAL (CHLORPROTHIXENE) [Concomitant]
     Indication: BIPOLAR DISORDER
     Dosage: 65 mg, qd
     Route: 048
     Dates: start: 199402
  4. NIPOLEPT [Concomitant]
     Indication: BIPOLAR DISORDER
     Dosage: 50 mg, qd
     Dates: start: 201009, end: 201201

REACTIONS (1)
  - Drug ineffective [Unknown]
